FAERS Safety Report 7755694-X (Version None)
Quarter: 2011Q3

REPORT INFORMATION
  Report Type: 
  Country: None (occurrence: None)
  Receive Date: 20110914
  Receipt Date: 20110830
  Transmission Date: 20111222
  Serious: Yes (Hospitalization)
  Sender: FDA-Public Use
  Company Number: 20110640

PATIENT
  Age: 96 Year
  Sex: Male

DRUGS (3)
  1. TRAMCINOLONE (TRAMCINOLONE) [Concomitant]
  2. DEXAMETHASONE SODIUM PHOSPHATE [Suspect]
     Indication: EXOSTOSIS
     Dosage: .05 CC INTRAMUSCULAR
     Route: 030
     Dates: start: 20110722, end: 20110722
  3. LIDOCAINE 2% [Concomitant]

REACTIONS (5)
  - GRANULOMA [None]
  - PRODUCT QUALITY ISSUE [None]
  - INJECTION SITE SWELLING [None]
  - INJECTION SITE PAIN [None]
  - INJECTION SITE ERYTHEMA [None]
